FAERS Safety Report 7252740-7 (Version None)
Quarter: 2011Q1

REPORT INFORMATION
  Report Type: 
  Country: None (occurrence: None)
  Receive Date: 20110129
  Receipt Date: 20100120
  Transmission Date: 20110831
  Serious: No
  Sender: FDA-Public Use
  Company Number: US-ABBOTT-10P-163-0621857-00

PATIENT
  Sex: Female

DRUGS (3)
  1. HUMIRA [Suspect]
     Indication: CROHN'S DISEASE
     Dosage: LOADING DOSE TO BEGIN WITH
     Route: 058
     Dates: start: 20091001, end: 20091201
  2. HUMIRA [Suspect]
     Dates: start: 20091201
  3. HUMIRA [Suspect]

REACTIONS (2)
  - CROHN'S DISEASE [None]
  - ARTHRALGIA [None]
